FAERS Safety Report 5946064-5 (Version None)
Quarter: 2008Q4

REPORT INFORMATION
  Report Type: 
  Country: None (occurrence: None)
  Receive Date: 20081106
  Receipt Date: 20081106
  Transmission Date: 20090506
  Serious: No
  Sender: FDA-Public Use
  Company Number: None

PATIENT
  Age: 57 Year
  Sex: Male
  Weight: 79.38 kg

DRUGS (1)
  1. PREGABALIN [Suspect]
     Indication: NEUROPATHY PERIPHERAL
     Dosage: 50 MG TID PO
     Route: 048
     Dates: start: 20080804, end: 20080804

REACTIONS (1)
  - HYPOAESTHESIA [None]
